FAERS Safety Report 6912890-9 (Version None)
Quarter: 2010Q3

REPORT INFORMATION
  Report Type: 
  Country: None (occurrence: None)
  Receive Date: 20100806
  Receipt Date: 20090303
  Transmission Date: 20110219
  Serious: No
  Sender: FDA-Public Use
  Company Number: US-PFIZER INC-2008151550

PATIENT
  Sex: Male
  Weight: 79.4 kg

DRUGS (4)
  1. DETROL LA [Suspect]
     Indication: INCONTINENCE
     Dosage: 4 MG, 1X/DAY
     Route: 048
     Dates: start: 20080801
  2. WARFARIN SODIUM [Concomitant]
     Indication: PULMONARY THROMBOSIS
     Dosage: UNK
  3. FINASTERIDE [Concomitant]
     Indication: PROSTATOMEGALY
     Dosage: UNK
  4. METFORMIN HYDROCHLORIDE [Concomitant]
     Indication: TYPE 2 DIABETES MELLITUS
     Dosage: UNK

REACTIONS (2)
  - DRUG INEFFECTIVE [None]
  - INSOMNIA [None]
